FAERS Safety Report 26068243 (Version 1)
Quarter: 2025Q4

REPORT INFORMATION
  Report Type: Spontaneous
  Country: US (occurrence: US)
  Receive Date: 20251120
  Receipt Date: 20251120
  Transmission Date: 20260117
  Serious: Yes (Life-Threatening, Other)
  Sender: LABORATOIRES SERB
  Company Number: US-SERB S.A.S.-2188951

PATIENT
  Age: 41 Year
  Sex: Male

DRUGS (3)
  1. CROFAB [Suspect]
     Active Substance: AGKISTRODON PISCIVORUS IMMUNE FAB ANTIVENIN (OVINE)\CROTALUS ADAMANTEUS IMMUNE FAB ANTIVENIN (OVINE)
     Indication: Snake bite
  2. LOSARTAN [Concomitant]
     Active Substance: LOSARTAN
  3. ASPIRIN [Concomitant]
     Active Substance: ASPIRIN

REACTIONS (1)
  - Anaphylactic reaction [Recovered/Resolved]
